FAERS Safety Report 10208770 (Version 1)
Quarter: 2014Q2

REPORT INFORMATION
  Report Type: Spontaneous
  Country: IN (occurrence: IN)
  Receive Date: 20140530
  Receipt Date: 20140530
  Transmission Date: 20141212
  Serious: Yes (Other)
  Sender: FDA-Public Use
  Company Number: IN-ASTRAZENECA-2014SE36311

PATIENT
  Age: 65 Year
  Sex: Male

DRUGS (7)
  1. BRILINTA [Suspect]
     Indication: ACUTE CORONARY SYNDROME
     Route: 048
     Dates: start: 20140515, end: 20140520
  2. ATORVA [Concomitant]
  3. ASA [Concomitant]
  4. PANTOPRAZOLE [Concomitant]
  5. NITRATE [Concomitant]
  6. ANGIOSPAN [Concomitant]
  7. TAXIM [Concomitant]

REACTIONS (1)
  - Thrombosis in device [Recovered/Resolved]
